FAERS Safety Report 6714323-4 (Version None)
Quarter: 2010Q2

REPORT INFORMATION
  Report Type: 
  Country: None (occurrence: None)
  Receive Date: 20100506
  Receipt Date: 20100426
  Transmission Date: 20101027
  Serious: Yes (Hospitalization, Other)
  Sender: FDA-Public Use
  Company Number: FR-ELI_LILLY_AND_COMPANY-FR201004006779

PATIENT
  Sex: Female

DRUGS (2)
  1. PROZAC [Suspect]
     Indication: DEPRESSION
     Dosage: 20 MG, 2/D
     Route: 048
     Dates: start: 20070101, end: 20100209
  2. DAFLON [Concomitant]

REACTIONS (9)
  - ASTHENIA [None]
  - FALL [None]
  - HEADACHE [None]
  - HYPONATRAEMIA [None]
  - LOSS OF CONSCIOUSNESS [None]
  - MALAISE [None]
  - OPEN WOUND [None]
  - VERTIGO [None]
  - VOMITING [None]
